FAERS Safety Report 4591570-1 (Version None)
Quarter: 2005Q1

REPORT INFORMATION
  Report Type: 
  Country: None (occurrence: None)
  Receive Date: 20050222
  Receipt Date: 20041210
  Transmission Date: 20050727
  Serious: Yes (Other)
  Sender: FDA-Public Use
  Company Number: 2004102580

PATIENT
  Sex: Female
  Weight: 69.4003 kg

DRUGS (4)
  1. CELEBREX [Suspect]
     Indication: OSTEOPOROSIS
     Dosage: 200 MG (200 MG, 1 IN 1D), ORAL
     Route: 048
     Dates: start: 20010101, end: 20041126
  2. SERTRALINE HCL [Concomitant]
  3. BUPROPION HYDROCHLORIDE (BUPOPROPION HYDROCHLORIDE) [Concomitant]
  4. RALOXIFENE HCL [Concomitant]

REACTIONS (7)
  - BODY HEIGHT DECREASED [None]
  - BUNION [None]
  - CONDITION AGGRAVATED [None]
  - FALL [None]
  - HEADACHE [None]
  - JOINT SWELLING [None]
  - URINARY INCONTINENCE [None]
